FAERS Safety Report 10328167 (Version 2)
Quarter: 2014Q3

REPORT INFORMATION
  Report Type: Report from Study
  Country: AU (occurrence: AU)
  Receive Date: 20140721
  Receipt Date: 20140910
  Transmission Date: 20150326
  Serious: Yes (Other)
  Sender: FDA-Public Use
  Company Number: PHHY2014AU088313

PATIENT
  Age: 86 Year
  Sex: Female
  Weight: 68 kg

DRUGS (13)
  1. OROXINE [Concomitant]
     Active Substance: LEVOTHYROXINE SODIUM
     Dosage: 75 UG, DAILY (1 MANE, A.C)
  2. PRADAXA [Concomitant]
     Active Substance: DABIGATRAN ETEXILATE MESYLATE
     Dosage: 75 MG, BID
  3. OSTELIN VITAMIN D [Concomitant]
     Dosage: 3 DF, DAILY (MANE)
  4. ACLASTA [Suspect]
     Active Substance: ZOLEDRONIC ACID
     Dosage: 5 MG/100 ML
     Route: 042
  5. OSTELIN VITAMIN D [Concomitant]
     Dosage: 2 DF, DAILY (MANE)
  6. NEXIUM I.V. [Concomitant]
     Active Substance: ESOMEPRAZOLE SODIUM
     Dosage: 40 MG, QD
  7. SIMVASTATIN. [Concomitant]
     Active Substance: SIMVASTATIN
     Dosage: 40 MG, QHS (NOCTE)
  8. ACLASTA [Suspect]
     Active Substance: ZOLEDRONIC ACID
     Dosage: 5 MG/100 ML
     Route: 042
  9. ACLASTA [Suspect]
     Active Substance: ZOLEDRONIC ACID
     Dosage: 5 MG/100 ML
     Route: 042
     Dates: start: 20130423
  10. ACLASTA [Suspect]
     Active Substance: ZOLEDRONIC ACID
     Dosage: 5 MG/100 ML
     Route: 042
  11. ACLASTA [Suspect]
     Active Substance: ZOLEDRONIC ACID
     Dosage: 5 MG/100 ML
     Route: 042
  12. THYROXINE SODIUM [Concomitant]
     Active Substance: LEVOTHYROXINE SODIUM
     Dosage: 75 UG, DAILY (1 MANE A.C)
  13. LANOXIN [Concomitant]
     Active Substance: DIGOXIN
     Dosage: 2 DF, DAILY (MANE)

REACTIONS (12)
  - Blood glucose increased [Unknown]
  - Blood pressure systolic increased [Unknown]
  - Glomerular filtration rate decreased [Unknown]
  - White matter lesion [Unknown]
  - Rib fracture [Unknown]
  - Carotid artery stenosis [Unknown]
  - Cerebrovascular accident [Unknown]
  - Hyponatraemia [Unknown]
  - Cerebral small vessel ischaemic disease [Unknown]
  - Kyphosis [Unknown]
  - Migraine [Unknown]
  - Body height decreased [Unknown]

NARRATIVE: CASE EVENT DATE: 20101006
